FAERS Safety Report 4506885-2 (Version None)
Quarter: 2004Q4

REPORT INFORMATION
  Report Type: 
  Country: None (occurrence: None)
  Receive Date: 20041117
  Receipt Date: 20041108
  Transmission Date: 20050328
  Serious: Yes (Death, Other)
  Sender: FDA-Public Use
  Company Number: 2004090081

PATIENT
  Age: 67 Year
  Sex: Female
  Weight: 87 kg

DRUGS (7)
  1. TAHOR (ATORVASTATIN) [Suspect]
     Indication: ILL-DEFINED DISORDER
     Dosage: ONE DOSE FORM (1 IN 1 D), ORAL
     Route: 048
     Dates: end: 20040323
  2. HYDROXYZINE HYDROCHLORIDE [Suspect]
     Indication: ILL-DEFINED DISORDER
     Dosage: 1 DOSE FORM (1 IN 1 D)
     Dates: end: 20040323
  3. SULPIRIDE (SULPIRIDE) [Suspect]
     Indication: ILL-DEFINED DISORDER
     Dosage: 1 DOSE FORM (1 IN 1 D)
     Dates: end: 20040323
  4. CLOMIPRAMINE HCL [Suspect]
     Indication: ILL-DEFINED DISORDER
     Dosage: (25 MG), ORAL
     Route: 048
     Dates: end: 20040323
  5. LORAZEPAM [Suspect]
     Indication: ILL-DEFINED DISORDER
     Dosage: ORAL
     Route: 048
     Dates: end: 20040323
  6. VALACYCLOVIR HCL [Suspect]
     Indication: HERPES ZOSTER
     Dosage: 2 DOSE FORMS (1 IN 1 D), ORAL
     Route: 048
     Dates: start: 20040323, end: 20040323
  7. ALDACTAZINE (ALTIZIDE, SPIRONOLACTONE) [Concomitant]

REACTIONS (8)
  - BLOOD CREATININE INCREASED [None]
  - BLOOD GLUCOSE DECREASED [None]
  - BLOOD PRESSURE SYSTOLIC INCREASED [None]
  - HERPES ZOSTER [None]
  - HYPERKALAEMIA [None]
  - NEUROMYOPATHY [None]
  - SKIN MACERATION [None]
  - VENTRICULAR TACHYCARDIA [None]
